FAERS Safety Report 24971808 (Version 2)
Quarter: 2025Q1

REPORT INFORMATION
  Report Type: Spontaneous
  Country: BE (occurrence: BE)
  Receive Date: 20250214
  Receipt Date: 20250221
  Transmission Date: 20250409
  Serious: Yes (Hospitalization, Other)
  Sender: PFIZER
  Company Number: BE-ABBVIE-6122313

PATIENT
  Age: 32 Year

DRUGS (6)
  1. INFLIXIMAB [Suspect]
     Active Substance: INFLIXIMAB
     Dates: start: 201509, end: 201808
  2. METHOTREXATE SODIUM [Suspect]
     Active Substance: METHOTREXATE SODIUM
  3. METHOTREXATE SODIUM [Suspect]
     Active Substance: METHOTREXATE SODIUM
  4. HUMIRA [Suspect]
     Active Substance: ADALIMUMAB
     Indication: Crohn^s disease
     Route: 058
     Dates: start: 201405
  5. HUMIRA [Suspect]
     Active Substance: ADALIMUMAB
     Indication: Spondyloarthropathy
     Route: 058
     Dates: start: 201508
  6. PURINETHOL [Suspect]
     Active Substance: MERCAPTOPURINE

REACTIONS (5)
  - Fistula of small intestine [Unknown]
  - Abscess intestinal [Unknown]
  - Dyspepsia [Unknown]
  - Drug ineffective [Unknown]
  - Drug intolerance [Unknown]
